FAERS Safety Report 10366052 (Version 3)
Quarter: 2015Q3

REPORT INFORMATION
  Report Type: Report from Study
  Country: FR (occurrence: FR)
  Receive Date: 20140806
  Receipt Date: 20150720
  Transmission Date: 20151125
  Serious: Yes (Death)
  Sender: FDA-Public Use
  Company Number: FR-GLAXOSMITHKLINE-B1020948A

PATIENT
  Age: 59 Year
  Sex: Female

DRUGS (8)
  1. INNOHEP [Concomitant]
     Active Substance: TINZAPARIN SODIUM
     Dates: start: 20140319
  2. ZOPHREN [Concomitant]
     Active Substance: ONDANSETRON
     Dates: start: 20140721
  3. TOPOTECAN HYDROCHLORIDE. [Suspect]
     Active Substance: TOPOTECAN HYDROCHLORIDE
     Indication: OVARIAN CANCER
     Dosage: 125 MG/M2, 5 DAY/3 WEEKS
     Route: 042
     Dates: start: 20140630, end: 20140704
  4. OXYNORM [Concomitant]
     Active Substance: OXYCODONE HYDROCHLORIDE
     Dates: start: 20140628
  5. IMODIUM [Concomitant]
     Active Substance: LOPERAMIDE HYDROCHLORIDE
     Dates: start: 20140721
  6. PLACEBO [Suspect]
     Active Substance: UNSPECIFIED INGREDIENT
     Indication: OVARIAN CANCER
     Dosage: 1 DAY/3 WEEKS
     Route: 042
     Dates: start: 20140630, end: 20140630
  7. PASALIX [Concomitant]
     Dates: start: 20140620
  8. PRIMPERAN [Concomitant]
     Active Substance: METOCLOPRAMIDE HYDROCHLORIDE
     Dates: start: 20140721

REACTIONS (1)
  - Performance status decreased [Fatal]

NARRATIVE: CASE EVENT DATE: 20140724
